FAERS Safety Report 22090356 (Version 2)
Quarter: 2023Q1

REPORT INFORMATION
  Report Type: Spontaneous
  Country: CZ (occurrence: CZ)
  Receive Date: 20230313
  Receipt Date: 20230324
  Transmission Date: 20230418
  Serious: Yes (Death, Other)
  Sender: FDA-Public Use
  Company Number: CZ-BRISTOL-MYERS SQUIBB COMPANY-2023-027404

PATIENT
  Age: 51 Year
  Sex: Male

DRUGS (14)
  1. IMATINIB [Suspect]
     Active Substance: IMATINIB
     Indication: Chronic myeloid leukaemia
     Dosage: 400 MILLIGRAM
     Route: 065
  2. METHOTREXATE [Suspect]
     Active Substance: METHOTREXATE
     Indication: Chronic myeloid leukaemia
     Dosage: UNK
     Route: 037
  3. RITUXIMAB [Suspect]
     Active Substance: RITUXIMAB
     Indication: Chronic myeloid leukaemia
     Dosage: 100 MILLIGRAM (DAY 1 OF CHEMOTHERAPY)
     Route: 065
  4. RITUXIMAB [Suspect]
     Active Substance: RITUXIMAB
     Dosage: 200 MILLIGRAM (DAY 2 OF CHEMOTHERAPY)
     Route: 065
  5. RITUXIMAB [Suspect]
     Active Substance: RITUXIMAB
     Dosage: 400 MILLIGRAM (DAY 3 OF CHEMOTHERAPY)
     Route: 065
  6. VINCRISTINE [Suspect]
     Active Substance: VINCRISTINE
     Indication: Chronic myeloid leukaemia
     Dosage: 2 MILLIGRAM, QD (DAYS 7 AND 14 OF CHEMOTHERAPY)
     Route: 065
  7. ASPARAGINASE [Suspect]
     Active Substance: ASPARAGINASE
     Indication: Chronic myeloid leukaemia
     Dosage: 9000 IE DAYS 17 AND 25 OF CHEMOTHERAPY
     Route: 065
  8. INTERFERON ALFA-2A [Suspect]
     Active Substance: INTERFERON ALFA-2A
     Indication: Chronic myeloid leukaemia
     Dosage: UNK, 0.5 WEEK (3 MIU)
     Route: 065
     Dates: start: 201503
  9. CYTARABINE [Suspect]
     Active Substance: CYTARABINE
     Indication: Chronic myeloid leukaemia
     Dosage: UNK
     Route: 037
  10. DAUNORUBICIN HYDROCHLORIDE [Suspect]
     Active Substance: DAUNORUBICIN HYDROCHLORIDE
     Indication: Chronic myeloid leukaemia
     Dosage: 80MILLIGRAM,QD(DAYS7-8 AND 14-15 OF CHEMOTHERAPY)
     Route: 065
  11. DEXAMETHASONE [Suspect]
     Active Substance: DEXAMETHASONE
     Indication: Chronic myeloid leukaemia
     Dosage: UNK
     Route: 037
  12. CYCLOPHOSPHAMIDE [Suspect]
     Active Substance: CYCLOPHOSPHAMIDE
     Indication: Chronic myeloid leukaemia
     Dosage: 360 MILLIGRAM, QD (DAYS 4-6 OF CHEMOTHERAPY)
     Route: 065
  13. GRANULOCYTE COLONY-STIMULATING FACTOR NOS [Concomitant]
     Active Substance: GRANULOCYTE COLONY-STIMULATING FACTOR NOS
     Indication: Neutropenia
     Dosage: 48 MICROGRAM, 13 TIMES OVER EIGHT WEEKS
     Route: 065
  14. DASATINIB [Concomitant]
     Active Substance: DASATINIB
     Indication: Chronic myeloid leukaemia
     Dosage: DOSE OF 40 MG PER DAY FIVE TIMES PER WEEK
     Route: 065

REACTIONS (12)
  - Pneumonia influenzal [Fatal]
  - Mucosal inflammation [Unknown]
  - Nephrotic syndrome [Unknown]
  - Liver disorder [Unknown]
  - Neutropenia [Unknown]
  - Renal failure [Unknown]
  - Cerebral toxoplasmosis [Unknown]
  - Ileus [Unknown]
  - Pneumonia fungal [Unknown]
  - Pancreatitis acute [Unknown]
  - Weight decreased [Unknown]
  - Off label use [Unknown]
